FAERS Safety Report 9144225 (Version 1)
Quarter: 2013Q1

REPORT INFORMATION
  Report Type: Spontaneous
  Country: CH (occurrence: CH)
  Receive Date: 20130306
  Receipt Date: 20130306
  Transmission Date: 20140127
  Serious: Yes (Death)
  Sender: FDA-Public Use
  Company Number: CH-ROCHE-1197575

PATIENT
  Age: 87 Year
  Sex: Male

DRUGS (3)
  1. MARCOUMAR [Suspect]
     Indication: PERIPHERAL VASCULAR DISORDER
     Route: 048
     Dates: end: 20121219
  2. LUCENTIS [Suspect]
     Indication: MACULAR DEGENERATION
     Route: 031
     Dates: start: 20110926, end: 20120718
  3. BILOL [Concomitant]
     Route: 048

REACTIONS (1)
  - Cerebral haemorrhage [Fatal]
